FAERS Safety Report 10300377 (Version 2)
Quarter: 2014Q3

REPORT INFORMATION
  Report Type: Report from Study
  Country: NL (occurrence: NL)
  Receive Date: 20140712
  Receipt Date: 20140812
  Transmission Date: 20150326
  Serious: Yes (Death, Other)
  Sender: FDA-Public Use
  Company Number: PHHY2013NL157995

PATIENT
  Sex: Female

DRUGS (15)
  1. METOPROLOL [Concomitant]
     Active Substance: METOPROLOL
     Dosage: 50 (UNITS UNSPECIFIED)
  2. MOVICOLON [Concomitant]
     Active Substance: POLYETHYLENE GLYCOL 3350\POTASSIUM CHLORIDE\SODIUM BICARBONATE\SODIUM CHLORIDE
     Dosage: UKN
  3. MIRTAZAPINE. [Concomitant]
     Active Substance: MIRTAZAPINE
     Dosage: 30 (UNIT UNSPECIFIED)
  4. TOBI [Suspect]
     Active Substance: TOBRAMYCIN
     Dosage: UKN
     Route: 055
  5. HALDOL [Concomitant]
     Active Substance: HALOPERIDOL
     Dosage: 1DD 0.5MG
  6. TOBI [Suspect]
     Active Substance: TOBRAMYCIN
     Indication: BRONCHIECTASIS
     Dosage: 300 MG, 2 DD
     Route: 055
     Dates: start: 201205
  7. SINTROM [Concomitant]
     Active Substance: ACENOCOUMAROL
     Dosage: UKN
  8. FUROSEMIDE. [Concomitant]
     Active Substance: FUROSEMIDE
     Dosage: 40 (UNITS UNSPECIFIED)
  9. SPIRIVA [Concomitant]
     Active Substance: TIOTROPIUM BROMIDE MONOHYDRATE
     Dosage: 18 UG
  10. OXAZEPAM. [Concomitant]
     Active Substance: OXAZEPAM
     Dosage: WHEN NEEDED
  11. ALVESCO [Concomitant]
     Active Substance: CICLESONIDE
     Dosage: 2DD160
  12. SPIRONOLACTONE. [Concomitant]
     Active Substance: SPIRONOLACTONE
     Dosage: 25 MG
  13. CALCICHEW [Concomitant]
     Active Substance: CALCIUM CARBONATE
     Dosage: 2DD1
  14. FORADIL [Concomitant]
     Active Substance: FORMOTEROL FUMARATE
     Dosage: 3DD 12UG
  15. PANTOPRAZOLE [Concomitant]
     Active Substance: PANTOPRAZOLE SODIUM
     Dosage: 40 MG

REACTIONS (8)
  - General physical health deterioration [Unknown]
  - Limb injury [Unknown]
  - Hyponatraemia [Unknown]
  - Death [Fatal]
  - Renal failure [Unknown]
  - Cardiac failure [Unknown]
  - Cognitive disorder [Unknown]
  - Hyperkalaemia [Unknown]

NARRATIVE: CASE EVENT DATE: 20130210
